FAERS Safety Report 8831648 (Version 3)
Quarter: 2013Q1

REPORT INFORMATION
  Report Type: Spontaneous
  Country: US (occurrence: US)
  Receive Date: 20121009
  Receipt Date: 20130218
  Transmission Date: 20140127
  Serious: Yes (Death, Other)
  Sender: FDA-Public Use
  Company Number: PHEH2012US019293

PATIENT
  Sex: Male

DRUGS (1)
  1. STALEVO [Suspect]
     Dosage: 200 MG, UNK
     Route: 048

REACTIONS (4)
  - Death [Fatal]
  - Upper limb fracture [Unknown]
  - Cardiac disorder [Unknown]
  - Fall [Unknown]
